FAERS Safety Report 6112068-5 (Version None)
Quarter: 2009Q1

REPORT INFORMATION
  Report Type: 
  Country: None (occurrence: None)
  Receive Date: 20090311
  Receipt Date: 20090309
  Transmission Date: 20090719
  Serious: Yes (Hospitalization)
  Sender: FDA-Public Use
  Company Number: US-PFIZER INC-2009180140

PATIENT

DRUGS (6)
  1. METHYLPREDNISOLONE AND METHYLPREDNISOLONE ACETATE AND METHYLPREDNISOLO [Suspect]
     Dosage: UNK
     Dates: start: 20021006
  2. MYCOPHENOLATE MOFETIL [Suspect]
     Dosage: UNK
     Dates: start: 20021006
  3. ALL OTHER THERAPEUTIC PRODUCTS [Suspect]
     Indication: RENAL TRANSPLANT
     Dosage: 365 MG, UNK
     Route: 042
     Dates: start: 20021006
  4. PERINDOPRIL [Concomitant]
     Dosage: UNK
     Dates: start: 20021030
  5. BISOPROLOL [Concomitant]
     Dosage: UNK
     Dates: start: 20021023
  6. TERAZOSIN [Concomitant]
     Dosage: UNK
     Dates: start: 20021015

REACTIONS (1)
  - MENINGITIS CRYPTOCOCCAL [None]
